FAERS Safety Report 10568491 (Version 2)
Quarter: 2015Q2

REPORT INFORMATION
  Report Type: Spontaneous
  Country: CA (occurrence: CA)
  Receive Date: 20141106
  Receipt Date: 20150626
  Transmission Date: 20150821
  Serious: Yes (Hospitalization, Other)
  Sender: FDA-Public Use
  Company Number: CA-SA-2014SA148046

PATIENT
  Age: 47 Year
  Sex: Male
  Weight: 145 kg

DRUGS (208)
  1. DEMEROL [Suspect]
     Active Substance: MEPERIDINE HYDROCHLORIDE
     Indication: PAIN
     Route: 030
  2. DILAUDID [Suspect]
     Active Substance: HYDROMORPHONE HYDROCHLORIDE
     Indication: PAIN
     Route: 065
  3. HYDROMORPH CONTIN [Suspect]
     Active Substance: HYDROMORPHONE
     Indication: PAIN
     Route: 065
     Dates: start: 20070724, end: 20070802
  4. MORPHINE SULFATE. [Suspect]
     Active Substance: MORPHINE SULFATE
     Route: 065
  5. MORPHINE SULFATE. [Suspect]
     Active Substance: MORPHINE SULFATE
     Indication: PAIN
     Dosage: STRENGTH: 10 MG
     Route: 065
  6. HYDROMORPHONE HYDROCHLORIDE. [Suspect]
     Active Substance: HYDROMORPHONE HYDROCHLORIDE
     Indication: PAIN
     Route: 065
  7. OXYIR [Suspect]
     Active Substance: OXYCODONE HYDROCHLORIDE
     Route: 048
  8. OXYIR [Suspect]
     Active Substance: OXYCODONE HYDROCHLORIDE
     Route: 048
  9. OXYCONTIN [Suspect]
     Active Substance: OXYCODONE HYDROCHLORIDE
     Indication: BACK PAIN
     Route: 065
     Dates: end: 2012
  10. OXYCONTIN [Suspect]
     Active Substance: OXYCODONE HYDROCHLORIDE
     Indication: PANCREATITIS CHRONIC
     Route: 065
  11. OXYCONTIN [Suspect]
     Active Substance: OXYCODONE HYDROCHLORIDE
     Indication: PANCREATITIS CHRONIC
     Route: 065
  12. OXYCONTIN [Suspect]
     Active Substance: OXYCODONE HYDROCHLORIDE
     Indication: PANCREATITIS CHRONIC
     Route: 065
  13. OXYCONTIN [Suspect]
     Active Substance: OXYCODONE HYDROCHLORIDE
     Indication: PANCREATITIS CHRONIC
     Route: 065
  14. OXYCONTIN [Suspect]
     Active Substance: OXYCODONE HYDROCHLORIDE
     Indication: BACK PAIN
     Route: 065
  15. OXYCONTIN [Suspect]
     Active Substance: OXYCODONE HYDROCHLORIDE
     Indication: BACK PAIN
     Route: 065
  16. OXYCONTIN [Suspect]
     Active Substance: OXYCODONE HYDROCHLORIDE
     Indication: PANCREATITIS CHRONIC
     Route: 065
     Dates: start: 20030609
  17. OXYCONTIN [Suspect]
     Active Substance: OXYCODONE HYDROCHLORIDE
     Indication: PANCREATITIS CHRONIC
     Route: 065
  18. OXYCONTIN [Suspect]
     Active Substance: OXYCODONE HYDROCHLORIDE
     Indication: BACK PAIN
     Route: 065
  19. OXYCONTIN [Suspect]
     Active Substance: OXYCODONE HYDROCHLORIDE
     Indication: BACK PAIN
     Route: 065
     Dates: start: 20100302, end: 20100624
  20. OXYCONTIN [Suspect]
     Active Substance: OXYCODONE HYDROCHLORIDE
     Indication: PANCREATITIS CHRONIC
     Route: 065
     Dates: start: 200708
  21. OXYCONTIN [Suspect]
     Active Substance: OXYCODONE HYDROCHLORIDE
     Indication: BACK PAIN
     Route: 065
     Dates: start: 20070815, end: 20110303
  22. OXYCONTIN [Suspect]
     Active Substance: OXYCODONE HYDROCHLORIDE
     Indication: BACK PAIN
     Route: 065
  23. OXYCONTIN [Suspect]
     Active Substance: OXYCODONE HYDROCHLORIDE
     Indication: BACK PAIN
     Route: 065
  24. OXYNEO [Suspect]
     Active Substance: OXYCODONE
     Indication: BACK PAIN
     Route: 065
     Dates: start: 2012
  25. PMS-HYDROMORPHONE [Suspect]
     Active Substance: HYDROMORPHONE HYDROCHLORIDE
     Indication: PAIN
     Route: 065
     Dates: start: 20090904, end: 20091216
  26. SUPEUDOL [Suspect]
     Active Substance: OXYCODONE HYDROCHLORIDE
     Indication: PAIN
     Route: 065
     Dates: start: 20101025, end: 20101123
  27. BENADRYL [Concomitant]
     Active Substance: DIPHENHYDRAMINE HYDROCHLORIDE
     Dates: start: 20100824, end: 20100912
  28. FENOFIBRATE. [Concomitant]
     Active Substance: FENOFIBRATE
  29. IBUPROFEN. [Concomitant]
     Active Substance: IBUPROFEN
  30. LIPITOR [Concomitant]
     Active Substance: ATORVASTATIN CALCIUM
  31. LOMOTIL [Concomitant]
     Active Substance: ATROPINE SULFATE\DIPHENOXYLATE HYDROCHLORIDE
  32. LOVENOX [Concomitant]
     Active Substance: ENOXAPARIN SODIUM
     Dosage: FORM: SOLUTION SUBCUTANEOUS
     Dates: start: 20070726, end: 20070824
  33. METRONIDAZOLE. [Concomitant]
     Active Substance: METRONIDAZOLE
     Dates: start: 20100925, end: 20101004
  34. STEMETIL [Concomitant]
     Active Substance: PROCHLORPERAZINE MALEATE
  35. OXYIR [Suspect]
     Active Substance: OXYCODONE HYDROCHLORIDE
     Route: 048
  36. OXYIR [Suspect]
     Active Substance: OXYCODONE HYDROCHLORIDE
     Route: 048
     Dates: start: 20070414, end: 20080213
  37. OXYIR [Suspect]
     Active Substance: OXYCODONE HYDROCHLORIDE
     Route: 065
  38. OXYCONTIN [Suspect]
     Active Substance: OXYCODONE HYDROCHLORIDE
     Indication: BACK PAIN
     Route: 065
  39. OXYCONTIN [Suspect]
     Active Substance: OXYCODONE HYDROCHLORIDE
     Indication: ABDOMINAL PAIN
     Route: 065
     Dates: start: 20030609
  40. OXYCONTIN [Suspect]
     Active Substance: OXYCODONE HYDROCHLORIDE
     Indication: PANCREATITIS CHRONIC
     Route: 065
  41. OXYCONTIN [Suspect]
     Active Substance: OXYCODONE HYDROCHLORIDE
     Indication: PANCREATITIS CHRONIC
     Route: 065
     Dates: start: 1998
  42. OXYCONTIN [Suspect]
     Active Substance: OXYCODONE HYDROCHLORIDE
     Indication: BACK PAIN
     Route: 065
     Dates: start: 20070414, end: 20100921
  43. OXYNEO [Suspect]
     Active Substance: OXYCODONE
     Indication: ABDOMINAL PAIN
     Route: 065
     Dates: start: 2012
  44. OXYNEO [Suspect]
     Active Substance: OXYCODONE
     Indication: BACK PAIN
     Route: 065
  45. PMS-HYDROMORPHONE [Suspect]
     Active Substance: HYDROMORPHONE HYDROCHLORIDE
     Indication: PAIN
     Route: 065
     Dates: start: 20100317, end: 20101029
  46. ASPIRIN. [Concomitant]
     Active Substance: ASPIRIN
  47. ATIVAN [Concomitant]
     Active Substance: LORAZEPAM
  48. CHAMPIX [Concomitant]
     Active Substance: VARENICLINE TARTRATE
     Dates: start: 20110218, end: 20110303
  49. CREON [Concomitant]
     Active Substance: PANCRELIPASE AMYLASE\PANCRELIPASE LIPASE\PANCRELIPASE PROTEASE
     Dates: start: 20101202, end: 20101231
  50. INSULIN [Concomitant]
     Active Substance: INSULIN NOS
  51. LORAZEPAM. [Concomitant]
     Active Substance: LORAZEPAM
  52. METFORMIN [Concomitant]
     Active Substance: METFORMIN HYDROCHLORIDE
  53. NOVORAPID [Concomitant]
     Active Substance: INSULIN ASPART
     Dates: start: 20070419, end: 20110319
  54. NU-COTRIMOX [Concomitant]
  55. ALL OTHER THERAPEUTIC PRODUCTS [Concomitant]
     Active Substance: UNSPECIFIED INGREDIENT
  56. SLOW-K [Concomitant]
     Active Substance: POTASSIUM CHLORIDE
     Dosage: FORM: TABLET, SUGAR COATED
     Dates: start: 20100824, end: 20101116
  57. ZANTAC [Concomitant]
     Active Substance: RANITIDINE HYDROCHLORIDE
  58. ZAROXOLYN [Concomitant]
     Active Substance: METOLAZONE
     Dates: start: 20070910, end: 20110209
  59. FENTANYL. [Suspect]
     Active Substance: FENTANYL
     Indication: PAIN
     Route: 065
     Dates: start: 20100918, end: 20101017
  60. HYDROMORPH CONTIN [Suspect]
     Active Substance: HYDROMORPHONE
     Indication: PAIN
     Route: 065
  61. HYDROMORPH CONTIN [Suspect]
     Active Substance: HYDROMORPHONE
     Indication: PAIN
     Route: 065
     Dates: start: 20100317, end: 20101112
  62. HYDROMORPHONE [Suspect]
     Active Substance: HYDROMORPHONE
     Route: 065
  63. OXYIR [Suspect]
     Active Substance: OXYCODONE HYDROCHLORIDE
     Route: 048
  64. OXYIR [Suspect]
     Active Substance: OXYCODONE HYDROCHLORIDE
     Route: 065
  65. ACETAMINOPHEN W/OXYCODONE [Suspect]
     Active Substance: ACETAMINOPHEN\OXYCODONE HYDROCHLORIDE
     Route: 065
  66. OXYCONTIN [Suspect]
     Active Substance: OXYCODONE HYDROCHLORIDE
     Indication: ABDOMINAL PAIN
     Route: 065
     Dates: start: 1998
  67. OXYCONTIN [Suspect]
     Active Substance: OXYCODONE HYDROCHLORIDE
     Indication: ABDOMINAL PAIN
     Route: 065
     Dates: end: 2012
  68. OXYCONTIN [Suspect]
     Active Substance: OXYCODONE HYDROCHLORIDE
     Indication: BACK PAIN
     Route: 065
  69. OXYCONTIN [Suspect]
     Active Substance: OXYCODONE HYDROCHLORIDE
     Indication: BACK PAIN
     Route: 065
  70. OXYCONTIN [Suspect]
     Active Substance: OXYCODONE HYDROCHLORIDE
     Indication: ABDOMINAL PAIN
     Route: 065
  71. OXYCONTIN [Suspect]
     Active Substance: OXYCODONE HYDROCHLORIDE
     Indication: ABDOMINAL PAIN
     Route: 065
     Dates: start: 1998
  72. OXYCONTIN [Suspect]
     Active Substance: OXYCODONE HYDROCHLORIDE
     Indication: PANCREATITIS CHRONIC
     Route: 065
     Dates: start: 20100302, end: 20100624
  73. OXYCONTIN [Suspect]
     Active Substance: OXYCODONE HYDROCHLORIDE
     Indication: PANCREATITIS CHRONIC
     Route: 065
  74. OXYCONTIN [Suspect]
     Active Substance: OXYCODONE HYDROCHLORIDE
     Indication: BACK PAIN
     Route: 065
  75. OXYCONTIN [Suspect]
     Active Substance: OXYCODONE HYDROCHLORIDE
     Indication: PANCREATITIS CHRONIC
     Route: 065
  76. OXYNEO [Suspect]
     Active Substance: OXYCODONE
     Indication: PANCREATITIS CHRONIC
     Route: 065
     Dates: start: 2012
  77. OXYNEO [Suspect]
     Active Substance: OXYCODONE
     Indication: BACK PAIN
     Route: 065
  78. OXYCODONE/APAP [Suspect]
     Active Substance: ACETAMINOPHEN\OXYCODONE HYDROCHLORIDE
     Route: 065
  79. FENTANYL. [Suspect]
     Active Substance: FENTANYL
     Dosage: FORM: PATCH
     Route: 065
     Dates: start: 20100918, end: 20101017
  80. ALTACE [Concomitant]
     Active Substance: RAMIPRIL
     Dates: start: 20101004, end: 20101107
  81. RAMIPRIL. [Concomitant]
     Active Substance: RAMIPRIL
     Dates: start: 20101004, end: 20101107
  82. FUROSEMIDE. [Concomitant]
     Active Substance: FUROSEMIDE
  83. NIACIN. [Concomitant]
     Active Substance: NIACIN
  84. NICOTINE POLACRILEX [Concomitant]
     Active Substance: NICOTINE
     Dosage: FORM: GUM
  85. NU-RANIT [Concomitant]
     Dates: start: 20100324, end: 20100910
  86. CIPROFLOXACIN. [Concomitant]
     Active Substance: CIPROFLOXACIN
     Dates: start: 20100823, end: 20100827
  87. PROCTOSEDYL [Concomitant]
     Active Substance: DIBUCAINE HYDROCHLORIDE\HYDROCORTISONE
  88. SEROQUEL [Concomitant]
     Active Substance: QUETIAPINE FUMARATE
  89. VICTOZA [Concomitant]
     Active Substance: LIRAGLUTIDE
     Dosage: MULTIDOSE PENINJECTOR. 30DOSES(0.6MG)-15DOSES(1.2MG)-10DOSES(1.8MG).1/2/3;FORM:SOLUTION SUBCUTANEOUS
  90. OXYCONTIN [Suspect]
     Active Substance: OXYCODONE HYDROCHLORIDE
     Indication: ABDOMINAL PAIN
     Route: 065
  91. OXYCONTIN [Suspect]
     Active Substance: OXYCODONE HYDROCHLORIDE
     Indication: ABDOMINAL PAIN
     Route: 065
  92. OXYCONTIN [Suspect]
     Active Substance: OXYCODONE HYDROCHLORIDE
     Indication: ABDOMINAL PAIN
     Route: 065
  93. OXYCONTIN [Suspect]
     Active Substance: OXYCODONE HYDROCHLORIDE
     Indication: BACK PAIN
     Route: 065
     Dates: start: 20030609
  94. OXYCONTIN [Suspect]
     Active Substance: OXYCODONE HYDROCHLORIDE
     Indication: BACK PAIN
     Route: 065
  95. OXYCONTIN [Suspect]
     Active Substance: OXYCODONE HYDROCHLORIDE
     Indication: PANCREATITIS CHRONIC
     Route: 065
     Dates: start: 20080114, end: 20110223
  96. OXYCONTIN [Suspect]
     Active Substance: OXYCODONE HYDROCHLORIDE
     Indication: ABDOMINAL PAIN
     Route: 065
     Dates: start: 20100302, end: 20100624
  97. OXYCONTIN [Suspect]
     Active Substance: OXYCODONE HYDROCHLORIDE
     Indication: ABDOMINAL PAIN
     Route: 065
     Dates: start: 200708
  98. OXYCONTIN [Suspect]
     Active Substance: OXYCODONE HYDROCHLORIDE
     Indication: BACK PAIN
     Route: 065
     Dates: start: 200708
  99. OXYCONTIN [Suspect]
     Active Substance: OXYCODONE HYDROCHLORIDE
     Indication: BACK PAIN
     Route: 065
  100. OXYCONTIN [Suspect]
     Active Substance: OXYCODONE HYDROCHLORIDE
     Indication: PANCREATITIS CHRONIC
     Route: 065
  101. OXYNEO [Suspect]
     Active Substance: OXYCODONE
     Indication: ABDOMINAL PAIN
     Route: 065
  102. PMS-HYDROMORPHONE [Suspect]
     Active Substance: HYDROMORPHONE HYDROCHLORIDE
     Indication: PAIN
     Route: 065
  103. OXYCODONE HYDROCHLORIDE. [Suspect]
     Active Substance: OXYCODONE HYDROCHLORIDE
     Indication: PAIN
     Route: 065
     Dates: start: 20100102, end: 20100210
  104. OXYCODONE HYDROCHLORIDE. [Suspect]
     Active Substance: OXYCODONE HYDROCHLORIDE
     Indication: PAIN
     Route: 065
  105. SUPEUDOL [Suspect]
     Active Substance: OXYCODONE HYDROCHLORIDE
     Indication: PAIN
     Route: 065
     Dates: start: 20100515, end: 20110303
  106. SUPEUDOL [Suspect]
     Active Substance: OXYCODONE HYDROCHLORIDE
     Indication: PAIN
     Route: 065
  107. CREON [Concomitant]
     Active Substance: PANCRELIPASE AMYLASE\PANCRELIPASE LIPASE\PANCRELIPASE PROTEASE
  108. EZETROL [Concomitant]
     Active Substance: EZETIMIBE
  109. HUMULIN R [Concomitant]
     Active Substance: INSULIN HUMAN
     Dosage: FORM: SOLUTION INTRAMUSCULAR
  110. NORTRIPTYLINE [Concomitant]
     Active Substance: NORTRIPTYLINE
     Dates: start: 20100918, end: 20101017
  111. POTASSIUM CHLORIDE. [Concomitant]
     Active Substance: POTASSIUM CHLORIDE
  112. DEMEROL [Suspect]
     Active Substance: MEPERIDINE HYDROCHLORIDE
     Indication: PAIN
     Route: 030
  113. HYDROMORPH CONTIN [Suspect]
     Active Substance: HYDROMORPHONE
     Indication: PAIN
     Route: 065
     Dates: start: 20100918, end: 20101017
  114. MS CONTIN [Suspect]
     Active Substance: MORPHINE SULFATE
     Indication: PAIN
     Route: 065
  115. MORPHINE SULFATE. [Suspect]
     Active Substance: MORPHINE SULFATE
     Indication: PAIN
     Route: 065
  116. OXYCONTIN [Suspect]
     Active Substance: OXYCODONE HYDROCHLORIDE
     Indication: BACK PAIN
     Route: 065
  117. OXYCONTIN [Suspect]
     Active Substance: OXYCODONE HYDROCHLORIDE
     Indication: ABDOMINAL PAIN
     Route: 065
     Dates: start: 20080114, end: 20110223
  118. OXYCONTIN [Suspect]
     Active Substance: OXYCODONE HYDROCHLORIDE
     Indication: BACK PAIN
     Route: 065
     Dates: start: 20080114, end: 20110223
  119. OXYCONTIN [Suspect]
     Active Substance: OXYCODONE HYDROCHLORIDE
     Indication: PANCREATITIS CHRONIC
     Route: 065
  120. OXYCONTIN [Suspect]
     Active Substance: OXYCODONE HYDROCHLORIDE
     Indication: BACK PAIN
     Route: 065
  121. OXYCONTIN [Suspect]
     Active Substance: OXYCODONE HYDROCHLORIDE
     Indication: PANCREATITIS CHRONIC
     Route: 065
  122. OXYCONTIN [Suspect]
     Active Substance: OXYCODONE HYDROCHLORIDE
     Indication: PANCREATITIS CHRONIC
     Route: 065
  123. OXYCONTIN [Suspect]
     Active Substance: OXYCODONE HYDROCHLORIDE
     Indication: ABDOMINAL PAIN
     Route: 065
  124. OXYCONTIN [Suspect]
     Active Substance: OXYCODONE HYDROCHLORIDE
     Indication: ABDOMINAL PAIN
     Route: 065
  125. OXYCONTIN [Suspect]
     Active Substance: OXYCODONE HYDROCHLORIDE
     Indication: ABDOMINAL PAIN
     Route: 065
  126. OXYCONTIN [Suspect]
     Active Substance: OXYCODONE HYDROCHLORIDE
     Indication: ABDOMINAL PAIN
     Route: 065
     Dates: start: 20070414, end: 20100921
  127. OXYCONTIN [Suspect]
     Active Substance: OXYCODONE HYDROCHLORIDE
     Indication: PANCREATITIS CHRONIC
     Route: 065
     Dates: start: 20071031, end: 20071129
  128. OXYNEO [Suspect]
     Active Substance: OXYCODONE
     Indication: ABDOMINAL PAIN
     Route: 048
  129. APO-FUROSEMIDE [Concomitant]
  130. CLINDAMYCIN [Concomitant]
     Active Substance: CLINDAMYCIN\CLINDAMYCIN PHOSPHATE
     Dates: start: 20100925, end: 20101004
  131. DIPROSALIC /DEN/ [Concomitant]
     Dates: start: 20100324, end: 20100422
  132. HUMULIN N [Concomitant]
     Active Substance: INSULIN HUMAN
     Dosage: FORM:SUSPENSION SUBCUTANEOUS
     Dates: start: 20070630, end: 20080212
  133. LORAZEPAM. [Concomitant]
     Active Substance: LORAZEPAM
     Dates: start: 20071231, end: 20080109
  134. RISPERDAL [Concomitant]
     Active Substance: RISPERIDONE
  135. HYDROMORPH CONTIN [Suspect]
     Active Substance: HYDROMORPHONE
     Indication: PAIN
     Route: 065
  136. OXYIR [Suspect]
     Active Substance: OXYCODONE HYDROCHLORIDE
     Route: 048
     Dates: start: 20091125, end: 20091208
  137. OXYCONTIN [Suspect]
     Active Substance: OXYCODONE HYDROCHLORIDE
     Indication: PANCREATITIS CHRONIC
     Route: 065
     Dates: start: 1998
  138. OXYCONTIN [Suspect]
     Active Substance: OXYCODONE HYDROCHLORIDE
     Indication: PANCREATITIS CHRONIC
     Route: 065
     Dates: end: 2012
  139. OXYCONTIN [Suspect]
     Active Substance: OXYCODONE HYDROCHLORIDE
     Indication: ABDOMINAL PAIN
     Route: 065
  140. OXYCONTIN [Suspect]
     Active Substance: OXYCODONE HYDROCHLORIDE
     Indication: PANCREATITIS CHRONIC
     Route: 065
  141. OXYCONTIN [Suspect]
     Active Substance: OXYCODONE HYDROCHLORIDE
     Indication: BACK PAIN
     Route: 065
     Dates: start: 1998
  142. OXYCONTIN [Suspect]
     Active Substance: OXYCODONE HYDROCHLORIDE
     Indication: PANCREATITIS CHRONIC
     Route: 065
     Dates: start: 20070815, end: 20110303
  143. OXYCONTIN [Suspect]
     Active Substance: OXYCODONE HYDROCHLORIDE
     Indication: PANCREATITIS CHRONIC
     Route: 065
  144. OXYCONTIN [Suspect]
     Active Substance: OXYCODONE HYDROCHLORIDE
     Indication: ABDOMINAL PAIN
     Route: 065
  145. OXYCONTIN [Suspect]
     Active Substance: OXYCODONE HYDROCHLORIDE
     Indication: BACK PAIN
     Route: 065
     Dates: start: 20071031, end: 20071129
  146. OXYNEO [Suspect]
     Active Substance: OXYCODONE
     Indication: PANCREATITIS CHRONIC
     Route: 048
  147. OXYNEO [Suspect]
     Active Substance: OXYCODONE
     Indication: PANCREATITIS CHRONIC
     Route: 065
  148. SUPEUDOL [Suspect]
     Active Substance: OXYCODONE HYDROCHLORIDE
     Indication: PAIN
     Route: 065
  149. DIAZEPAM. [Concomitant]
     Active Substance: DIAZEPAM
  150. BACLOFEN. [Concomitant]
     Active Substance: BACLOFEN
     Dosage: STRENGTH: 10 MG
     Dates: start: 20070804, end: 20070806
  151. INSULIN-MONO N [Concomitant]
  152. LEVEMIR [Concomitant]
     Active Substance: INSULIN DETEMIR
     Dosage: FORM: SOLUTION SUBCUTANEOUS
     Dates: start: 20090916, end: 20110319
  153. LIPIDIL [Concomitant]
     Active Substance: FENOFIBRATE
  154. FUROSEMIDE. [Concomitant]
     Active Substance: FUROSEMIDE
     Dates: start: 20091114, end: 20101201
  155. RAMIPRIL. [Concomitant]
     Active Substance: RAMIPRIL
     Dates: start: 20101018, end: 20101205
  156. FENTANYL. [Suspect]
     Active Substance: FENTANYL
     Indication: PAIN
     Dosage: FORM: PATCH
     Route: 065
     Dates: start: 20110119, end: 20110124
  157. FENTANYL. [Suspect]
     Active Substance: FENTANYL
     Indication: PAIN
     Route: 065
  158. MS CONTIN [Suspect]
     Active Substance: MORPHINE SULFATE
     Indication: PAIN
     Route: 065
  159. OPIOIDS [Suspect]
     Active Substance: UNSPECIFIED INGREDIENT
     Indication: PAIN
     Route: 065
     Dates: start: 1992
  160. HYDROMORPHONE HYDROCHLORIDE. [Suspect]
     Active Substance: HYDROMORPHONE HYDROCHLORIDE
     Indication: PAIN
     Route: 065
  161. OXYIR [Suspect]
     Active Substance: OXYCODONE HYDROCHLORIDE
     Route: 048
  162. OXYCONTIN [Suspect]
     Active Substance: OXYCODONE HYDROCHLORIDE
     Indication: BACK PAIN
     Route: 065
     Dates: start: 1998
  163. OXYCONTIN [Suspect]
     Active Substance: OXYCODONE HYDROCHLORIDE
     Indication: ABDOMINAL PAIN
     Route: 065
  164. OXYCONTIN [Suspect]
     Active Substance: OXYCODONE HYDROCHLORIDE
     Indication: PANCREATITIS CHRONIC
     Route: 065
  165. OXYCONTIN [Suspect]
     Active Substance: OXYCODONE HYDROCHLORIDE
     Indication: PANCREATITIS CHRONIC
     Route: 065
  166. OXYCONTIN [Suspect]
     Active Substance: OXYCODONE HYDROCHLORIDE
     Indication: ABDOMINAL PAIN
     Route: 065
  167. OXYCONTIN [Suspect]
     Active Substance: OXYCODONE HYDROCHLORIDE
     Indication: BACK PAIN
     Route: 065
  168. OXYCONTIN [Suspect]
     Active Substance: OXYCODONE HYDROCHLORIDE
     Indication: ABDOMINAL PAIN
     Route: 065
  169. OXYCONTIN [Suspect]
     Active Substance: OXYCODONE HYDROCHLORIDE
     Indication: ABDOMINAL PAIN
     Route: 065
  170. OXYCONTIN [Suspect]
     Active Substance: OXYCODONE HYDROCHLORIDE
     Indication: ABDOMINAL PAIN
     Route: 065
  171. OXYCONTIN [Suspect]
     Active Substance: OXYCODONE HYDROCHLORIDE
     Indication: PANCREATITIS CHRONIC
     Route: 065
     Dates: start: 20070414, end: 20100921
  172. OXYNEO [Suspect]
     Active Substance: OXYCODONE
     Indication: BACK PAIN
     Route: 048
  173. OXYCODONE HYDROCHLORIDE. [Suspect]
     Active Substance: OXYCODONE HYDROCHLORIDE
     Indication: PAIN
     Route: 065
     Dates: start: 20100122, end: 20101015
  174. DOMPERIDONE [Concomitant]
     Active Substance: DOMPERIDONE
  175. ELAVIL [Concomitant]
     Active Substance: AMITRIPTYLINE HYDROCHLORIDE
     Dates: start: 20100405, end: 20100504
  176. LOPERAMIDE [Concomitant]
     Active Substance: LOPERAMIDE
  177. NIASPAN [Concomitant]
     Active Substance: NIACIN
  178. NICODERM CQ [Concomitant]
     Active Substance: NICOTINE
     Dosage: FORM: PATCH
  179. SPIRONOLACTONE. [Concomitant]
     Active Substance: SPIRONOLACTONE
     Dates: start: 20101018, end: 20110209
  180. PANTOLOC [Concomitant]
     Active Substance: PANTOPRAZOLE SODIUM
     Dosage: FORM: ENTERIC COATED TABLET
     Dates: start: 20060718, end: 20071009
  181. RANITIDINE [Concomitant]
     Active Substance: RANITIDINE\RANITIDINE HYDROCHLORIDE
  182. TYLENOL EXTRA STRENGTH [Concomitant]
     Active Substance: ACETAMINOPHEN
  183. DURAGESIC [Suspect]
     Active Substance: FENTANYL
     Dosage: FORM: PATCH
     Route: 065
  184. DURAGESIC [Suspect]
     Active Substance: FENTANYL
     Route: 065
  185. HYDROMORPH CONTIN [Suspect]
     Active Substance: HYDROMORPHONE
     Indication: PAIN
     Route: 065
  186. HYDROMORPH CONTIN [Suspect]
     Active Substance: HYDROMORPHONE
     Indication: PAIN
     Route: 065
  187. HYDROMORPHONE [Suspect]
     Active Substance: HYDROMORPHONE
     Route: 065
  188. OXYIR [Suspect]
     Active Substance: OXYCODONE HYDROCHLORIDE
     Route: 048
  189. OXYCONTIN [Suspect]
     Active Substance: OXYCODONE HYDROCHLORIDE
     Indication: BACK PAIN
     Route: 065
  190. OXYCONTIN [Suspect]
     Active Substance: OXYCODONE HYDROCHLORIDE
     Indication: ABDOMINAL PAIN
     Route: 065
  191. OXYCONTIN [Suspect]
     Active Substance: OXYCODONE HYDROCHLORIDE
     Indication: ABDOMINAL PAIN
     Route: 065
  192. OXYCONTIN [Suspect]
     Active Substance: OXYCODONE HYDROCHLORIDE
     Indication: PANCREATITIS CHRONIC
     Route: 065
  193. OXYCONTIN [Suspect]
     Active Substance: OXYCODONE HYDROCHLORIDE
     Indication: BACK PAIN
     Route: 065
  194. OXYCONTIN [Suspect]
     Active Substance: OXYCODONE HYDROCHLORIDE
     Indication: ABDOMINAL PAIN
     Route: 065
     Dates: start: 20070815, end: 20110303
  195. OXYCONTIN [Suspect]
     Active Substance: OXYCODONE HYDROCHLORIDE
     Indication: ABDOMINAL PAIN
     Route: 065
  196. OXYCONTIN [Suspect]
     Active Substance: OXYCODONE HYDROCHLORIDE
     Indication: BACK PAIN
     Route: 065
  197. OXYCONTIN [Suspect]
     Active Substance: OXYCODONE HYDROCHLORIDE
     Indication: ABDOMINAL PAIN
     Route: 065
     Dates: start: 20071031, end: 20071129
  198. OXYNEO [Suspect]
     Active Substance: OXYCODONE
     Indication: PANCREATITIS CHRONIC
     Route: 065
  199. OXYNEO [Suspect]
     Active Substance: OXYCODONE
     Indication: ABDOMINAL PAIN
     Route: 065
  200. ALDACTONE [Concomitant]
     Active Substance: SPIRONOLACTONE
     Dates: start: 20091114, end: 20101015
  201. CRESTOR [Concomitant]
     Active Substance: ROSUVASTATIN CALCIUM
     Dates: start: 20100324, end: 20101205
  202. DICETEL [Concomitant]
     Active Substance: PINAVERIUM BROMIDE
  203. GABAPENTIN. [Concomitant]
     Active Substance: GABAPENTIN
     Dates: start: 20100918, end: 20101112
  204. GEMFIBROZIL. [Concomitant]
     Active Substance: GEMFIBROZIL
  205. HUMALOG [Concomitant]
     Active Substance: INSULIN LISPRO
  206. NOVO-CLINDAMYCIN [Concomitant]
     Dates: start: 20071218, end: 2009
  207. RAMIPRIL. [Concomitant]
     Active Substance: RAMIPRIL
  208. WARFARIN [Concomitant]
     Active Substance: WARFARIN
     Dates: start: 20070723, end: 20070801

REACTIONS (70)
  - Dyslipidaemia [Unknown]
  - Diabetes mellitus [Unknown]
  - Azotaemia [Unknown]
  - Eczema [Unknown]
  - Hyperbilirubinaemia [Unknown]
  - Hyperglycaemia [Unknown]
  - Hyperhidrosis [Unknown]
  - Malaise [Unknown]
  - Stress [Unknown]
  - Dyskinesia [Unknown]
  - Chronic obstructive pulmonary disease [Unknown]
  - Cellulitis [Unknown]
  - Erosive duodenitis [Unknown]
  - Inflammation [Unknown]
  - Prerenal failure [Unknown]
  - Accidental overdose [Unknown]
  - Impaired work ability [Unknown]
  - Pain [Unknown]
  - Pulmonary embolism [Unknown]
  - Skin ulcer [Unknown]
  - Sleep apnoea syndrome [Unknown]
  - Weight increased [Unknown]
  - Nausea [Unknown]
  - Oedema peripheral [Unknown]
  - Jaundice [Unknown]
  - Confusional state [Unknown]
  - Drug ineffective [Unknown]
  - Diarrhoea [Unknown]
  - Duodenitis [Unknown]
  - Dyspnoea exertional [Unknown]
  - Lymphoedema [Unknown]
  - Metabolic encephalopathy [Unknown]
  - Osteoarthritis [Unknown]
  - Urinary tract obstruction [Unknown]
  - Varicose vein [Unknown]
  - Agitation [Unknown]
  - Somnolence [Unknown]
  - Respiratory depression [Unknown]
  - Drug tolerance increased [Unknown]
  - Tobacco abuse [Unknown]
  - Depressed level of consciousness [Unknown]
  - Anxiety [Unknown]
  - Fluid retention [Unknown]
  - Pancreatic cyst [Unknown]
  - Vomiting [Unknown]
  - Drug withdrawal syndrome [Unknown]
  - Drug dependence [Unknown]
  - Substance abuse [Unknown]
  - Quality of life decreased [Unknown]
  - Deep vein thrombosis [Unknown]
  - Cholecystitis [Unknown]
  - Feeling of body temperature change [Unknown]
  - Headache [Unknown]
  - Hepatic steatosis [Unknown]
  - Hiccups [Unknown]
  - Hyperlipidaemia [Unknown]
  - Liver function test abnormal [Unknown]
  - Local swelling [Unknown]
  - Pruritus generalised [Unknown]
  - Abdominal pain [Unknown]
  - Hypercholesterolaemia [Unknown]
  - Hyperventilation [Unknown]
  - Orthopnoea [Unknown]
  - Pancreatic mass [Unknown]
  - Piloerection [Unknown]
  - Stasis dermatitis [Unknown]
  - Peripheral venous disease [Unknown]
  - Irritability [Unknown]
  - Off label use [Unknown]
  - Obesity [Unknown]
